FAERS Safety Report 5046890-3 (Version None)
Quarter: 2006Q2

REPORT INFORMATION
  Report Type: 
  Country: None (occurrence: None)
  Receive Date: 20060630
  Receipt Date: 20060616
  Transmission Date: 20061013
  Serious: Yes (Death, Hospitalization)
  Sender: FDA-Public Use
  Company Number: 111001ISR

PATIENT
  Age: 6 Year
  Sex: Female

DRUGS (5)
  1. AMITRIPTYLINE HCL [Suspect]
     Dosage: 16 MILLIGRAM
  2. CISAPRIDE [Suspect]
     Dosage: 4.4 MILLIGRAM
  3. RANITIDINE [Concomitant]
  4. FUROSEMIDE [Concomitant]
  5. AMILORIDE [Concomitant]

REACTIONS (11)
  - ARRHYTHMIA [None]
  - BLOOD ZINC DECREASED [None]
  - CARDIOMEGALY [None]
  - CARNITINE DECREASED [None]
  - CONGESTIVE CARDIOMYOPATHY [None]
  - DYSPNOEA [None]
  - GASTROOESOPHAGEAL REFLUX DISEASE [None]
  - PAIN [None]
  - SERUM FERRITIN DECREASED [None]
  - TACHYCARDIA [None]
  - VENTRICULAR DYSFUNCTION [None]
